FAERS Safety Report 17153207 (Version 2)
Quarter: 2019Q4

REPORT INFORMATION
  Report Type: Report from Study
  Country: HN (occurrence: HN)
  Receive Date: 20191213
  Receipt Date: 20191230
  Transmission Date: 20200122
  Serious: Yes (Other)
  Sender: FDA-Public Use
  Company Number: HN-BAYER-2019-220378

PATIENT
  Age: 26 Year
  Sex: Female

DRUGS (2)
  1. NEXAVAR [Suspect]
     Active Substance: SORAFENIB
     Indication: HEPATOCELLULAR CARCINOMA
     Dosage: DAILY DOSE 800 MG
     Route: 048
     Dates: start: 201905, end: 20191129
  2. NEXAVAR [Suspect]
     Active Substance: SORAFENIB
     Indication: HEPATOCELLULAR CARCINOMA
     Dosage: 600 MG PER DAY
     Route: 048
     Dates: start: 20191218

REACTIONS (10)
  - Vulvovaginal rash [Not Recovered/Not Resolved]
  - Off label use [None]
  - Localised oedema [None]
  - Skin lesion [Recovering/Resolving]
  - Fatigue [None]
  - Discomfort [None]
  - Oedema peripheral [None]
  - Blood glucose decreased [None]
  - Acne [Not Recovered/Not Resolved]
  - Acne [None]

NARRATIVE: CASE EVENT DATE: 201906
